FAERS Safety Report 8339686-8 (Version None)
Quarter: 2012Q2

REPORT INFORMATION
  Report Type: 
  Country: None (occurrence: None)
  Receive Date: 20120507
  Receipt Date: 20120423
  Transmission Date: 20120825
  Serious: Yes (Other)
  Sender: FDA-Public Use
  Company Number: PHHY2012AU027201

PATIENT
  Sex: Female

DRUGS (6)
  1. ANTI D IMI [Concomitant]
     Dosage: 625 IU, UNK
     Dates: start: 20120104, end: 20120315
  2. CLOTRIMAZOLE [Concomitant]
     Indication: CANDIDIASIS
  3. OXYTOCIN [Suspect]
     Dosage: 1 ML
     Route: 030
     Dates: start: 20120301
  4. SYNTOCINON [Suspect]
     Dosage: 10 IU
     Route: 030
     Dates: start: 20120319
  5. FERROUS SULFATE TAB [Concomitant]
  6. MISOPROSTOL [Concomitant]
     Dosage: 800 MG, UNK

REACTIONS (2)
  - POSTPARTUM HAEMORRHAGE [None]
  - MATERNAL EXPOSURE DURING PREGNANCY [None]
